FAERS Safety Report 4440351-8 (Version None)
Quarter: 2004Q3

REPORT INFORMATION
  Report Type: 
  Country: None (occurrence: None)
  Receive Date: 20040903
  Receipt Date: 20040824
  Transmission Date: 20050211
  Serious: Yes (Hospitalization)
  Sender: FDA-Public Use
  Company Number: FR-BRISTOL-MYERS SQUIBB COMPANY-12681128

PATIENT
  Age: 73 Year
  Sex: Female

DRUGS (6)
  1. COAPROVEL [Suspect]
     Indication: HYPERTENSION
     Route: 048
     Dates: end: 20040612
  2. TILCOTIL [Interacting]
     Dates: end: 20040612
  3. FUNGIZONE [Concomitant]
     Dates: end: 20040612
  4. OMEPRAZOLE [Concomitant]
  5. DAFLON [Concomitant]
     Dates: end: 20040615
  6. SMECTA [Concomitant]

REACTIONS (4)
  - DEHYDRATION [None]
  - DRUG INTERACTION [None]
  - GASTROENTERITIS [None]
  - RENAL FAILURE ACUTE [None]
